FAERS Safety Report 6791780-9 (Version None)
Quarter: 2010Q2

REPORT INFORMATION
  Report Type: 
  Country: None (occurrence: None)
  Receive Date: 20100624
  Receipt Date: 20090429
  Transmission Date: 20101027
  Serious: Yes (Other)
  Sender: FDA-Public Use
  Company Number: US-PFIZER INC-2008059028

PATIENT
  Sex: Female
  Weight: 54 kg

DRUGS (6)
  1. PROVERA [Suspect]
     Indication: HORMONE REPLACEMENT THERAPY
     Dosage: UNK
     Route: 048
     Dates: end: 19960101
  2. MEDROXYPROGESTERONE ACETATE [Suspect]
     Indication: HORMONE REPLACEMENT THERAPY
     Dosage: UNK
     Route: 048
     Dates: end: 19960101
  3. MEDROXYPROGESTERONE ACETATE [Suspect]
     Dosage: UNK
     Dates: end: 19960101
  4. PREMARIN [Suspect]
     Indication: HORMONE REPLACEMENT THERAPY
     Dosage: UNK
     Dates: end: 19960101
  5. PREMPRO [Suspect]
     Indication: HORMONE REPLACEMENT THERAPY
     Dosage: UNK
     Dates: start: 19960101, end: 20000101
  6. DIAZIDE [Concomitant]
     Indication: FLUID RETENTION
     Dosage: UNK
     Dates: start: 19750101, end: 20081001

REACTIONS (1)
  - BREAST CANCER FEMALE [None]
